FAERS Safety Report 15895188 (Version 1)
Quarter: 2019Q1

REPORT INFORMATION
  Report Type: Spontaneous
  Country: US (occurrence: US)
  Receive Date: 20190129
  Receipt Date: 20190129
  Transmission Date: 20190417
  Serious: Yes (Other)
  Sender: FDA-Public Use
  Company Number: None

PATIENT
  Age: 52 Week
  Sex: Male
  Weight: 115.65 kg

DRUGS (1)
  1. LUPRON [Suspect]
     Active Substance: LEUPROLIDE ACETATE
     Indication: IATROGENIC INJURY
     Dates: start: 20011127, end: 20181210

REACTIONS (3)
  - Testicular pain [None]
  - Malaise [None]
  - Asthenia [None]

NARRATIVE: CASE EVENT DATE: 20011204
